FAERS Safety Report 6325995-0 (Version None)
Quarter: 2009Q3

REPORT INFORMATION
  Report Type: 
  Country: None (occurrence: None)
  Receive Date: 20090820
  Receipt Date: 20090804
  Transmission Date: 20100115
  Serious: Yes (Hospitalization)
  Sender: FDA-Public Use
  Company Number: THQ2008A00023

PATIENT
  Age: 77 Year
  Sex: Female

DRUGS (5)
  1. LANSOPRAZOLE [Suspect]
     Indication: GASTROOESOPHAGEAL REFLUX DISEASE
     Dosage: 30 MG (30MG, 1 IN 1 D)
  2. LANSOPRAZOLE [Suspect]
     Indication: HIATUS HERNIA
     Dosage: 30 MG (30MG, 1 IN 1 D)
  3. LANSOPRAZOLE [Suspect]
     Indication: OESOPHAGITIS
     Dosage: 30 MG (30MG, 1 IN 1 D)
  4. FEVERFEW (TANACETUM PARTHENIUM) [Suspect]
     Dosage: STO
  5. ECHINACEA (ECHINACEA PURPUREA EXTRACT) [Concomitant]

REACTIONS (3)
  - DRUG EFFECT DECREASED [None]
  - DRUG INTERACTION [None]
  - UPPER GASTROINTESTINAL HAEMORRHAGE [None]
